FAERS Safety Report 7312847-2 (Version None)
Quarter: 2011Q1

REPORT INFORMATION
  Report Type: 
  Country: None (occurrence: None)
  Receive Date: 20110224
  Receipt Date: 20110214
  Transmission Date: 20110831
  Serious: Yes (Other)
  Sender: FDA-Public Use
  Company Number: SE-WATSON-2011-02040

PATIENT
  Age: 82 Year
  Sex: Female

DRUGS (2)
  1. ENALAPRIL MALEATE (WATSON LABORATORIES) [Suspect]
     Indication: HYPERTENSION
     Dosage: 20 MG, UNK
  2. FUROSEMIDE (WATSON LABORATORIES) [Suspect]
     Indication: HYPERTENSION
     Dosage: 60 MG, UNKNOWN

REACTIONS (1)
  - RENAL FAILURE [None]
